FAERS Safety Report 23085305 (Version 1)
Quarter: 2023Q4

REPORT INFORMATION
  Report Type: Report from Study
  Country: US (occurrence: US)
  Receive Date: 20231019
  Receipt Date: 20231019
  Transmission Date: 20240109
  Serious: Yes (Hospitalization)
  Sender: FDA-Public Use
  Company Number: US-TAKEDA-2023TUS100859

PATIENT
  Age: 66 Year
  Sex: Female
  Weight: 68 kg

DRUGS (19)
  1. TEDUGLUTIDE [Suspect]
     Active Substance: TEDUGLUTIDE
     Indication: Short-bowel syndrome
     Dosage: 3.63 MILLIGRAM
     Route: 042
     Dates: start: 20150501, end: 2020
  2. TEDUGLUTIDE [Suspect]
     Active Substance: TEDUGLUTIDE
     Indication: Short-bowel syndrome
     Dosage: 3.63 MILLIGRAM
     Route: 042
     Dates: start: 20150501, end: 2020
  3. TEDUGLUTIDE [Suspect]
     Active Substance: TEDUGLUTIDE
     Indication: Short-bowel syndrome
     Dosage: 3.63 MILLIGRAM
     Route: 042
     Dates: start: 20150501, end: 2020
  4. TEDUGLUTIDE [Suspect]
     Active Substance: TEDUGLUTIDE
     Indication: Short-bowel syndrome
     Dosage: 3.63 MILLIGRAM
     Route: 042
     Dates: start: 20150501, end: 2020
  5. TEDUGLUTIDE [Suspect]
     Active Substance: TEDUGLUTIDE
     Dosage: 3.63 MILLIGRAM, QD
     Route: 042
     Dates: start: 20200702, end: 20230530
  6. TEDUGLUTIDE [Suspect]
     Active Substance: TEDUGLUTIDE
     Dosage: 3.63 MILLIGRAM, QD
     Route: 042
     Dates: start: 20200702, end: 20230530
  7. TEDUGLUTIDE [Suspect]
     Active Substance: TEDUGLUTIDE
     Dosage: 3.63 MILLIGRAM, QD
     Route: 042
     Dates: start: 20200702, end: 20230530
  8. TEDUGLUTIDE [Suspect]
     Active Substance: TEDUGLUTIDE
     Dosage: 3.63 MILLIGRAM, QD
     Route: 042
     Dates: start: 20200702, end: 20230530
  9. AUGMENTIN [Concomitant]
     Active Substance: AMOXICILLIN\CLAVULANATE POTASSIUM
     Indication: Chronic obstructive pulmonary disease
     Dosage: 125 MILLIGRAM, BID
     Route: 048
     Dates: start: 20230530, end: 20230605
  10. CODEINE [Concomitant]
     Active Substance: CODEINE
     Indication: Diarrhoea
     Dosage: 30 MILLIGRAM, BID
     Route: 048
     Dates: start: 20210905
  11. OMEPRAZOLE [Concomitant]
     Active Substance: OMEPRAZOLE
     Indication: Gastrooesophageal reflux disease
     Dosage: 40 MILLIGRAM, QD
     Route: 048
     Dates: start: 20170123
  12. CYANOCOBALAMIN [Concomitant]
     Active Substance: CYANOCOBALAMIN
     Indication: Vitamin B12 deficiency
     Dosage: 1 MILLIGRAM, MONTHLY
     Dates: start: 20221124
  13. VITAMIN D2 [Concomitant]
     Active Substance: ERGOCALCIFEROL
     Indication: Vitamin D deficiency
     Dosage: 50000 INTERNATIONAL UNIT, 1/WEEK
     Route: 048
     Dates: start: 20150513
  14. BUPROPION HYDROCHLORIDE [Concomitant]
     Active Substance: BUPROPION HYDROCHLORIDE
     Indication: Depression
     Dosage: 150 MILLIGRAM, QD
     Route: 048
     Dates: start: 20210430
  15. ESTRADIOL\NORETHINDRONE [Concomitant]
     Active Substance: ESTRADIOL\NORETHINDRONE
     Indication: Menopausal symptoms
     Dosage: 0.05 MILLIGRAM, 2/WEEK
     Route: 062
     Dates: start: 20120628
  16. LEXAPRO [Concomitant]
     Active Substance: ESCITALOPRAM OXALATE
     Indication: Anxiety
     Dosage: 10 MILLIGRAM, QD
     Route: 048
     Dates: start: 20191114
  17. ALBUTEROL [Concomitant]
     Active Substance: ALBUTEROL
     Indication: Pneumonia
     Dosage: 108 MICROGRAM, Q6HR
     Route: 055
     Dates: start: 20220131, end: 20220214
  18. PREDNISONE [Concomitant]
     Active Substance: PREDNISONE
  19. OCTREOTIDE [Concomitant]
     Active Substance: OCTREOTIDE
     Indication: Short-bowel syndrome
     Dosage: 50 MICROGRAM, BID
     Route: 058
     Dates: start: 20190215

REACTIONS (1)
  - Chronic obstructive pulmonary disease [Recovered/Resolved]

NARRATIVE: CASE EVENT DATE: 20230529
